FAERS Safety Report 10066429 (Version 1)
Quarter: 2014Q2

REPORT INFORMATION
  Report Type: Spontaneous
  Country: US (occurrence: None)
  Receive Date: 20140401
  Receipt Date: 20140401
  Transmission Date: 20141212
  Serious: Yes (Hospitalization)
  Sender: FDA-Public Use
  Company Number: PHEH2013US008991

PATIENT
  Age: 71 Year
  Sex: Female

DRUGS (2)
  1. EXELON PATCH (RIVASTIGMINE) TRANS-THERAPEUTIC-SYSTEM [Suspect]
     Route: 062
  2. METFORMIN (METFORMIN) [Concomitant]

REACTIONS (3)
  - Cerebrovascular accident [None]
  - Hypersomnia [None]
  - Somnolence [None]
